FAERS Safety Report 6677380-X (Version None)
Quarter: 2010Q2

REPORT INFORMATION
  Report Type: 
  Country: None (occurrence: None)
  Receive Date: 20100412
  Receipt Date: 20100104
  Transmission Date: 20101027
  Serious: No
  Sender: FDA-Public Use
  Company Number: US-ALEXION-A201000009

PATIENT
  Sex: Male

DRUGS (7)
  1. SOLIRIS [Suspect]
     Indication: PAROXYSMAL NOCTURNAL HAEMOGLOBINURIA
     Dosage: 600 MG, QW
     Route: 042
     Dates: start: 20090918, end: 20091002
  2. SOLIRIS [Suspect]
     Dosage: 900 MG, Q2W
     Route: 042
     Dates: start: 20091016
  3. SOLIRIS [Suspect]
     Dosage: 600 MG, QW
     Route: 042
     Dates: start: 20091216, end: 20100105
  4. SOLIRIS [Suspect]
     Dosage: 900 MG, UNK
     Route: 042
     Dates: start: 20100122
  5. LISINOPRIL [Concomitant]
     Dosage: 20 MG, QD
     Route: 048
  6. NORVASC [Concomitant]
     Dosage: 5 MG, QD
     Route: 048
  7. ONE TABLET DAILY MENS FORMULA [Concomitant]
     Dosage: UNK
     Route: 048

REACTIONS (1)
  - TINNITUS [None]
